FAERS Safety Report 8259622-2 (Version None)
Quarter: 2012Q2

REPORT INFORMATION
  Report Type: 
  Country: None (occurrence: None)
  Receive Date: 20120404
  Receipt Date: 20120329
  Transmission Date: 20120825
  Serious: Yes (Other)
  Sender: FDA-Public Use
  Company Number: PHEH2012US005608

PATIENT
  Sex: Female

DRUGS (2)
  1. GILENYA [Suspect]
     Indication: MULTIPLE SCLEROSIS
     Dosage: 0.5 MG, QD
     Route: 048
     Dates: start: 20120227, end: 20120329
  2. VITAMIN B-12 [Concomitant]
     Route: 048

REACTIONS (3)
  - EAR INFECTION [None]
  - CENTRAL NERVOUS SYSTEM LESION [None]
  - FATIGUE [None]
